FAERS Safety Report 9572047 (Version 1)
Quarter: 2013Q3

REPORT INFORMATION
  Report Type: Spontaneous
  Country: US (occurrence: None)
  Receive Date: 20130930
  Receipt Date: 20130930
  Transmission Date: 20140515
  Serious: No
  Sender: FDA-Public Use
  Company Number: None

PATIENT
  Age: 67 Year
  Sex: Male
  Weight: 90.3 kg

DRUGS (1)
  1. ALEMTUZUMAB (CAMPATH) [Suspect]

REACTIONS (1)
  - Lymphocyte count decreased [None]
